FAERS Safety Report 9106831 (Version 5)
Quarter: 2013Q3

REPORT INFORMATION
  Report Type: Report from Study
  Country: JP (occurrence: JP)
  Receive Date: 20130221
  Receipt Date: 20130904
  Transmission Date: 20140515
  Serious: Yes (Other)
  Sender: FDA-Public Use
  Company Number: JP-JNJFOC-20130211081

PATIENT
  Age: 67 Year
  Sex: Male

DRUGS (16)
  1. REMICADE [Suspect]
     Indication: COLITIS ULCERATIVE
     Route: 042
     Dates: start: 20120918
  2. REMICADE [Suspect]
     Indication: COLITIS ULCERATIVE
     Route: 042
  3. REMICADE [Suspect]
     Indication: COLITIS ULCERATIVE
     Route: 042
     Dates: start: 20121030
  4. REMICADE [Suspect]
     Indication: COLITIS ULCERATIVE
     Route: 042
     Dates: start: 20121225
  5. REMICADE [Suspect]
     Indication: COLITIS ULCERATIVE
     Route: 042
     Dates: start: 20120612
  6. REMICADE [Suspect]
     Indication: COLITIS ULCERATIVE
     Route: 042
     Dates: start: 20120807
  7. PREDNISOLONE [Suspect]
     Indication: COLITIS ULCERATIVE
     Route: 048
     Dates: start: 20121128
  8. PREDNISOLONE [Suspect]
     Indication: COLITIS ULCERATIVE
     Route: 048
     Dates: start: 20120418, end: 20120426
  9. PREDNISOLONE [Suspect]
     Indication: COLITIS ULCERATIVE
     Route: 048
     Dates: start: 20120409, end: 20120417
  10. PREDNISOLONE [Suspect]
     Indication: COLITIS ULCERATIVE
     Route: 048
     Dates: start: 20120427, end: 20120524
  11. PREDNISOLONE [Suspect]
     Indication: COLITIS ULCERATIVE
     Route: 048
     Dates: start: 20120525, end: 20120612
  12. PREDNISOLONE [Suspect]
     Indication: COLITIS ULCERATIVE
     Route: 048
     Dates: start: 20120613, end: 20121127
  13. OMEPRAL [Concomitant]
     Indication: GASTROOESOPHAGEAL REFLUX DISEASE
     Route: 048
     Dates: start: 20120524
  14. LAC-B [Concomitant]
     Indication: COLITIS ULCERATIVE
     Route: 048
  15. PARIET [Concomitant]
     Indication: GASTROOESOPHAGEAL REFLUX DISEASE
     Route: 048
     Dates: start: 20120331
  16. BIOFERMIN [Concomitant]
     Indication: COLITIS ULCERATIVE
     Route: 048

REACTIONS (1)
  - Cytomegalovirus infection [Recovered/Resolved]
